FAERS Safety Report 11021930 (Version 1)
Quarter: 2015Q2

REPORT INFORMATION
  Report Type: Spontaneous
  Country: KR (occurrence: KR)
  Receive Date: 20150413
  Receipt Date: 20150413
  Transmission Date: 20150821
  Serious: Yes (Hospitalization)
  Sender: FDA-Public Use
  Company Number: PHHY2015KR042302

PATIENT
  Age: 40 Year
  Sex: Female

DRUGS (3)
  1. PACLITAXEL. [Suspect]
     Active Substance: PACLITAXEL
     Indication: THYMOMA
     Dosage: 175 MG/M2, OVER 3 HOURS ON DAY 1
     Route: 042
  2. MESNA. [Suspect]
     Active Substance: MESNA
     Indication: THYMOMA
     Dosage: 500 MG/M2, OVER 15 MINUTES ON DAYS 1 AND 2
     Route: 042
  3. IFOSFAMIDE. [Suspect]
     Active Substance: IFOSFAMIDE
     Indication: THYMOMA
     Dosage: 2500 MG/M2, OVER 2 HOURS ON DAYS 1 AND 2
     Route: 042

REACTIONS (9)
  - Metabolic acidosis [Recovered/Resolved]
  - Hypocalcaemia [Recovered/Resolved]
  - Acute kidney injury [Unknown]
  - Tachypnoea [Recovering/Resolving]
  - Hyperphosphataemia [Recovered/Resolved]
  - Hyperuricaemia [Recovered/Resolved]
  - Dyspnoea [Recovering/Resolving]
  - Tumour lysis syndrome [Recovering/Resolving]
  - Tachycardia [Recovering/Resolving]
